FAERS Safety Report 8950673 (Version 1)
Quarter: 2012Q4

REPORT INFORMATION
  Report Type: Report from Study
  Country: CH (occurrence: JP)
  Receive Date: 20121207
  Receipt Date: 20121207
  Transmission Date: 20130627
  Serious: Yes (Hospitalization)
  Sender: FDA-Public Use
  Company Number: JP-009507513-1212JPN001296

PATIENT
  Age: 70 Year
  Sex: Male
  Weight: 73.8 kg

DRUGS (11)
  1. EZETIMIBE [Suspect]
     Indication: HYPERLIPIDAEMIA
     Dosage: 10 mg, qd
     Route: 048
     Dates: start: 20110121
  2. TOCILIZUMAB [Suspect]
     Indication: RHEUMATOID ARTHRITIS
     Dosage: 162 mg, qow
     Route: 058
     Dates: start: 20100702, end: 20101203
  3. TOCILIZUMAB [Suspect]
     Dosage: 162 mg, qow
     Route: 058
     Dates: start: 20101217
  4. ETODOLAC [Suspect]
     Indication: RHEUMATOID ARTHRITIS
     Dosage: 200 mg, bid
     Route: 048
     Dates: start: 20100402
  5. LANSOPRAZOLE [Suspect]
     Dosage: 15 mg, qd
     Route: 048
     Dates: start: 20100402
  6. PREDNISOLONE [Suspect]
     Dosage: beginning of dosage day: trial pre-initiation 5 mg, qd
     Route: 048
  7. REBAMIPIDE [Suspect]
     Dosage: 100 mg, bid
     Route: 048
     Dates: start: 20100402
  8. OLMESARTAN MEDOXOMIL [Suspect]
     Indication: HYPERTENSION
     Dosage: 1 DF, qd
     Route: 048
     Dates: start: 20100529
  9. DIFLUPREDNATE [Suspect]
     Indication: PSORIASIS
     Dosage: UNK
     Route: 061
  10. CROTAMITON [Suspect]
     Indication: PSORIASIS
     Route: 061
  11. CALCIPOTRIENE [Suspect]
     Indication: PSORIASIS
     Dosage: UNK
     Route: 061
     Dates: start: 20101008

REACTIONS (1)
  - Large intestine polyp [Recovered/Resolved]
